FAERS Safety Report 20884561 (Version 1)
Quarter: 2022Q2

REPORT INFORMATION
  Report Type: Spontaneous
  Country: US (occurrence: US)
  Receive Date: 20220527
  Receipt Date: 20220527
  Transmission Date: 20220721
  Serious: No
  Sender: FDA-Public Use
  Company Number: US-BRISTOL-MYERS SQUIBB COMPANY-2022-047101

PATIENT
  Age: 65 Year
  Sex: Female
  Weight: 74.8 kg

DRUGS (1)
  1. REVLIMID [Suspect]
     Active Substance: LENALIDOMIDE
     Indication: Lymphoma
     Dosage: 10 MILLIGRAM, 21 DAYS ON 7 DAYS OFF
     Route: 048
     Dates: start: 20210226

REACTIONS (2)
  - Diarrhoea [Recovered/Resolved]
  - Arthritis [Unknown]
